FAERS Safety Report 18715968 (Version 1)
Quarter: 2021Q1

REPORT INFORMATION
  Report Type: Spontaneous
  Country: US (occurrence: US)
  Receive Date: 20210107
  Receipt Date: 20210107
  Transmission Date: 20210419
  Serious: No
  Sender: FDA-Public Use
  Company Number: None

PATIENT
  Age: 89 Year
  Sex: Female
  Weight: 95.25 kg

DRUGS (1)
  1. TRAVOPROST. [Suspect]
     Active Substance: TRAVOPROST

REACTIONS (2)
  - Unevaluable event [None]
  - Throat tightness [None]
